FAERS Safety Report 9531234 (Version 1)
Quarter: 2013Q3

REPORT INFORMATION
  Report Type: Spontaneous
  Country: US (occurrence: None)
  Receive Date: 20130916
  Receipt Date: 20130916
  Transmission Date: 20140515
  Serious: Yes (Other)
  Sender: FDA-Public Use
  Company Number: None

PATIENT
  Age: 62 Year
  Sex: Male
  Weight: 90.72 kg

DRUGS (8)
  1. LISINOPRIL 10 MG [Suspect]
     Indication: HYPERTENSION
     Dosage: SEVERAL YEARS
  2. MULTIVITAMIN [Concomitant]
  3. ASPIRIN [Concomitant]
  4. FISH OIL CONCENTRATE [Concomitant]
  5. SPIRONOLACTONE [Concomitant]
  6. LIPITOR [Concomitant]
  7. METFORMIN [Concomitant]
  8. LORATADINE [Concomitant]

REACTIONS (5)
  - Quality of life decreased [None]
  - Feeling cold [None]
  - Cold sweat [None]
  - Pallor [None]
  - Unevaluable event [None]
